FAERS Safety Report 20085186 (Version 1)
Quarter: 2021Q4

REPORT INFORMATION
  Report Type: Spontaneous
  Country: PL (occurrence: PL)
  Receive Date: 20211118
  Receipt Date: 20211118
  Transmission Date: 20220303
  Serious: Yes (Life-Threatening, Other)
  Sender: FDA-Public Use
  Company Number: None

PATIENT
  Age: 62 Year
  Sex: Male
  Weight: 80 kg

DRUGS (2)
  1. IBUPROFEN [Suspect]
     Active Substance: IBUPROFEN
     Indication: Product used for unknown indication
     Dosage: 4 G
     Route: 048
     Dates: start: 20210118, end: 20210118
  2. ACETAMINOPHEN [Suspect]
     Active Substance: ACETAMINOPHEN
     Indication: Product used for unknown indication
     Dosage: 20 G
     Route: 048
     Dates: start: 20210118, end: 20210118

REACTIONS (4)
  - Suicide attempt [Unknown]
  - Nausea [Unknown]
  - Toxicity to various agents [Unknown]
  - Drug abuse [Unknown]
